FAERS Safety Report 24638022 (Version 2)
Quarter: 2024Q4

REPORT INFORMATION
  Report Type: Spontaneous
  Country: US (occurrence: US)
  Receive Date: 20241119
  Receipt Date: 20241227
  Transmission Date: 20250115
  Serious: Yes (Other)
  Sender: PFIZER
  Company Number: US-PFIZER INC-PV202400149411

PATIENT
  Age: 95 Year
  Sex: Male

DRUGS (2)
  1. VYNDAMAX [Suspect]
     Active Substance: TAFAMIDIS
     Indication: Heart failure with reduced ejection fraction
     Dosage: ONE 61 MG CAPSULE ORALLY ONCE DAILY
     Route: 048
     Dates: start: 202306
  2. VYNDAMAX [Suspect]
     Active Substance: TAFAMIDIS
     Indication: Hepatocellular carcinoma

REACTIONS (4)
  - Atrial fibrillation [Not Recovered/Not Resolved]
  - Atrial flutter [Not Recovered/Not Resolved]
  - Asthenia [Recovering/Resolving]
  - Dizziness [Recovering/Resolving]
